FAERS Safety Report 6048556-X (Version None)
Quarter: 2009Q1

REPORT INFORMATION
  Report Type: 
  Country: None (occurrence: None)
  Receive Date: 20090122
  Receipt Date: 20090122
  Transmission Date: 20090719
  Serious: Yes (Life-Threatening)
  Sender: FDA-Public Use
  Company Number: None

PATIENT
  Age: 36 Year
  Sex: Female
  Weight: 65.7716 kg

DRUGS (1)
  1. MIRENA [Suspect]
     Dates: start: 20070801, end: 20080101

REACTIONS (2)
  - DEVICE RELATED INFECTION [None]
  - PELVIC INFLAMMATORY DISEASE [None]
